FAERS Safety Report 17362217 (Version 1)
Quarter: 2020Q1

REPORT INFORMATION
  Report Type: Spontaneous
  Country: US (occurrence: US)
  Receive Date: 20200201
  Receipt Date: 20200201
  Transmission Date: 20200409
  Serious: Yes (Disabling)
  Sender: FDA-Public Use
  Company Number: None

PATIENT
  Age: 65 Year
  Sex: Female
  Weight: 90 kg

DRUGS (12)
  1. ORENCIA [Suspect]
     Active Substance: ABATACEPT
  2. VALSARTAN HYDROCHLOROTIHIAZIDE 12.5MG [Concomitant]
  3. PREMARIN .625 [Concomitant]
  4. NEBIVOLOL 5MG [Concomitant]
     Active Substance: NEBIVOLOL
  5. LEFLUNOMIDE 20MG [Concomitant]
     Active Substance: LEFLUNOMIDE
  6. MULTIVITAMIN 50+ [Concomitant]
  7. PANTOPRAZOL 40MG [Concomitant]
     Active Substance: PANTOPRAZOLE SODIUM
  8. VITAMIN B COMPLEX [Concomitant]
     Active Substance: CYANOCOBALAMIN\DEXPANTHENOL\NIACINAMIDE\PYRIDOXINE HYDROCHLORIDE\RIBOFLAVIN 5^-PHOSPHATE SODIUM\THIAMINE HYDROCHLORIDE\VITAMIN B COMPLEX
  9. VITAMIN D 5000 IU [Concomitant]
  10. LIPOIC 300MG [Concomitant]
  11. PREDNISONE 5MG [Concomitant]
     Active Substance: PREDNISONE
  12. FOLIC ACID 10MG [Concomitant]

REACTIONS (16)
  - Pain [None]
  - Headache [None]
  - Syncope [None]
  - Flushing [None]
  - Aphonia [None]
  - Condition aggravated [None]
  - Fatigue [None]
  - Dyspnoea [None]
  - Pruritus [None]
  - Chest discomfort [None]
  - Asthenia [None]
  - Dizziness [None]
  - Chest pain [None]
  - Hyperhidrosis [None]
  - Pneumonia [None]
  - Product substitution issue [None]

NARRATIVE: CASE EVENT DATE: 20200109
